FAERS Safety Report 6981938-8 (Version None)
Quarter: 2010Q3

REPORT INFORMATION
  Report Type: 
  Country: None (occurrence: None)
  Receive Date: 20100914
  Receipt Date: 20091027
  Transmission Date: 20110219
  Serious: Yes (Other)
  Sender: FDA-Public Use
  Company Number: US-PFIZER INC-2009290660

PATIENT
  Sex: Male
  Weight: 90.703 kg

DRUGS (1)
  1. LYRICA [Suspect]
     Indication: PAIN
     Dosage: 50 MG, 1X/DAY
     Route: 048
     Dates: start: 20090901, end: 20090901

REACTIONS (4)
  - CELLULITIS [None]
  - FULL BLOOD COUNT DECREASED [None]
  - HEADACHE [None]
  - PLATELET COUNT DECREASED [None]
